FAERS Safety Report 14967180 (Version 1)
Quarter: 2018Q2

REPORT INFORMATION
  Report Type: Spontaneous
  Country: CZ (occurrence: CZ)
  Receive Date: 20180604
  Receipt Date: 20180604
  Transmission Date: 20180711
  Serious: Yes (Other)
  Sender: FDA-Public Use
  Company Number: CZ-CHEPLA-C20170696_C

PATIENT
  Age: 77 Year
  Sex: Male

DRUGS (2)
  1. ATRA [Suspect]
     Active Substance: TRETINOIN
     Indication: ACUTE PROMYELOCYTIC LEUKAEMIA
  2. ATO (ARSENIC TRIOXIDE) [Suspect]
     Active Substance: ARSENIC TRIOXIDE
     Indication: ACUTE PROMYELOCYTIC LEUKAEMIA
     Dosage: ATO (10 MG/D) + ATRA (45 MG/SPM/D) X 10 DAYS, EVERY MONTH (6 COURSES)

REACTIONS (2)
  - Electrocardiogram QT prolonged [Unknown]
  - Leukopenia [Unknown]
